FAERS Safety Report 4362081-3 (Version None)
Quarter: 2004Q2

REPORT INFORMATION
  Report Type: 
  Country: None (occurrence: None)
  Receive Date: 20040521
  Receipt Date: 20040301
  Transmission Date: 20050107
  Serious: No
  Sender: FDA-Public Use
  Company Number: US-GLAXOSMITHKLINE-A0500669A

PATIENT
  Age: 49 Year
  Sex: Female

DRUGS (7)
  1. WELLBUTRIN XL [Suspect]
     Indication: DEPRESSION
     Dosage: 300MG PER DAY
     Route: 048
     Dates: start: 20040215, end: 20040228
  2. SYNTHROID [Concomitant]
  3. LASIX [Concomitant]
  4. ATENOLOL [Concomitant]
  5. IMURAN [Concomitant]
  6. NEXIUM [Concomitant]
  7. PREDNISONE [Concomitant]

REACTIONS (4)
  - BALANCE DISORDER [None]
  - CREPITATIONS [None]
  - GAIT DISTURBANCE [None]
  - TREMOR [None]
